FAERS Safety Report 24130489 (Version 1)
Quarter: 2024Q3

REPORT INFORMATION
  Report Type: Spontaneous
  Country: FR (occurrence: FR)
  Receive Date: 20240724
  Receipt Date: 20240724
  Transmission Date: 20241016
  Serious: Yes (Death, Other)
  Sender: AUROBINDO
  Company Number: FR-AFSSAPS-MP2024001149

PATIENT
  Age: 1 Year
  Sex: Male
  Weight: 11.5 kg

DRUGS (6)
  1. LIDOCAINE [Suspect]
     Active Substance: LIDOCAINE
     Indication: Anaesthesia
     Dosage: 10 MILLIGRAM, 1 TOTAL
     Route: 065
     Dates: start: 20240415, end: 20240415
  2. ACETAMINOPHEN [Suspect]
     Active Substance: ACETAMINOPHEN
     Indication: Anaesthesia
     Dosage: 0.15 MILLIGRAM, 1 TOTAL
     Route: 065
     Dates: start: 20240415, end: 20240415
  3. OFLOXACIN [Suspect]
     Active Substance: OFLOXACIN
     Indication: Antibiotic therapy
     Dosage: 1 DOSAGE FORM, TWO TIMES A DAY
     Route: 001
     Dates: start: 20240415, end: 20240418
  4. DEXAMETHASONE ACETATE [Suspect]
     Active Substance: DEXAMETHASONE ACETATE
     Indication: Anaesthesia
     Dosage: 1.5 MILLIGRAM, 1 TOTAL
     Route: 042
     Dates: start: 20240415, end: 20240415
  5. KETAMINE [Suspect]
     Active Substance: KETAMINE
     Indication: Anaesthesia
     Dosage: 2 MILLIGRAM, 1 TOTAL
     Route: 065
     Dates: start: 20240415, end: 20240415
  6. PROPOFOL [Suspect]
     Active Substance: PROPOFOL
     Indication: Anaesthesia
     Dosage: 20 MILLIGRAM, 1 TOTAL
     Route: 042
     Dates: start: 20240415, end: 20240415

REACTIONS (1)
  - Sudden infant death syndrome [Fatal]

NARRATIVE: CASE EVENT DATE: 20240418
